FAERS Safety Report 5138670-5 (Version None)
Quarter: 2006Q4

REPORT INFORMATION
  Report Type: 
  Country: None (occurrence: None)
  Receive Date: 20061026
  Receipt Date: 20061026
  Transmission Date: 20070319
  Serious: Yes (Hospitalization)
  Sender: FDA-Public Use
  Company Number: None

PATIENT
  Sex: Male
  Weight: 86.4 kg

DRUGS (1)
  1. TEMOZOLOMIDE [Suspect]
     Dosage: 1860 MG

REACTIONS (4)
  - COUGH [None]
  - LUNG INFILTRATION [None]
  - PULMONARY EMBOLISM [None]
  - PYREXIA [None]
